FAERS Safety Report 10037253 (Version 2)
Quarter: 2014Q2

REPORT INFORMATION
  Report Type: Spontaneous
  Country: US (occurrence: US)
  Receive Date: 20140326
  Receipt Date: 20140506
  Transmission Date: 20141212
  Serious: No
  Sender: FDA-Public Use
  Company Number: US-009507513-1403USA009473

PATIENT
  Age: 57 Year
  Sex: Male

DRUGS (4)
  1. PROVENTIL [Suspect]
     Dosage: 2 INHALATIONS AS NEEDED
     Route: 055
     Dates: start: 2011
  2. ADVAIR [Concomitant]
     Dosage: UNK
     Dates: start: 201311
  3. LOSARTAN POTASSIUM TABLETS [Concomitant]
  4. SIMVASTATIN TABLETS, USP [Concomitant]

REACTIONS (4)
  - Emphysema [Unknown]
  - Influenza [Recovering/Resolving]
  - Incorrect dose administered [Unknown]
  - Product quality issue [Unknown]
